FAERS Safety Report 16259561 (Version 1)
Quarter: 2019Q2

REPORT INFORMATION
  Report Type: Spontaneous
  Country: CN (occurrence: CN)
  Receive Date: 20190501
  Receipt Date: 20190501
  Transmission Date: 20190711
  Serious: Yes (Hospitalization)
  Sender: FDA-Public Use
  Company Number: CN-ELI_LILLY_AND_COMPANY-CN201902007136

PATIENT
  Age: 59 Year
  Sex: Female
  Weight: 74 kg

DRUGS (8)
  1. HUMULIN R [Suspect]
     Active Substance: INSULIN HUMAN
     Dosage: 16 IU, EACH EVENING
     Route: 058
     Dates: start: 200902, end: 201808
  2. HUMALOG [Suspect]
     Active Substance: INSULIN LISPRO
     Dosage: 16 IU, DAILY, AT NIGHT
     Route: 058
     Dates: start: 201808
  3. HUMULIN R [Suspect]
     Active Substance: INSULIN HUMAN
     Dosage: 20 IU, PRN
     Route: 058
  4. METFORMIN [Concomitant]
     Active Substance: METFORMIN HYDROCHLORIDE
     Indication: TYPE 2 DIABETES MELLITUS
     Dosage: 1 DF, EACH MORNING
     Route: 048
  5. HUMULIN R [Suspect]
     Active Substance: INSULIN HUMAN
     Indication: TYPE 2 DIABETES MELLITUS
     Dosage: 18 IU, EACH MORNING
     Route: 058
     Dates: start: 200902, end: 201808
  6. METFORMIN [Concomitant]
     Active Substance: METFORMIN HYDROCHLORIDE
     Dosage: 1 DF, EACH EVENING
     Route: 048
  7. HUMULIN R [Suspect]
     Active Substance: INSULIN HUMAN
     Dosage: 22 IU, PRN
     Route: 058
  8. HUMALOG [Suspect]
     Active Substance: INSULIN LISPRO
     Indication: TYPE 2 DIABETES MELLITUS
     Dosage: 18 IU, EACH MORNING
     Route: 058
     Dates: start: 201808

REACTIONS (7)
  - Blood glucose increased [Unknown]
  - Hypoglycaemia [Recovered/Resolved]
  - Poor quality sleep [Unknown]
  - Muscular weakness [Unknown]
  - Intentional product misuse [Recovered/Resolved]
  - Urine abnormality [Unknown]
  - Dry mouth [Unknown]
